FAERS Safety Report 6727944-X (Version None)
Quarter: 2010Q2

REPORT INFORMATION
  Report Type: 
  Country: None (occurrence: None)
  Receive Date: 20100517
  Receipt Date: 20100504
  Transmission Date: 20101027
  Serious: Yes (Other)
  Sender: FDA-Public Use
  Company Number: US-SANOFI-AVENTIS-2010SA026708

PATIENT
  Age: 62 Year
  Sex: Male

DRUGS (4)
  1. RILUTEK [Suspect]
     Indication: AMYOTROPHIC LATERAL SCLEROSIS
     Route: 048
     Dates: start: 20090101
  2. ALLOPURINOL [Concomitant]
  3. PREDNISONE [Concomitant]
  4. DIGOXIN [Concomitant]

REACTIONS (5)
  - BONE DISORDER [None]
  - DISEASE PROGRESSION [None]
  - FALL [None]
  - JOINT SPRAIN [None]
  - PAIN IN EXTREMITY [None]
